FAERS Safety Report 10093992 (Version 1)
Quarter: 2014Q2

REPORT INFORMATION
  Report Type: Report from Study
  Country: CA (occurrence: CA)
  Receive Date: 20140421
  Receipt Date: 20140421
  Transmission Date: 20141212
  Serious: Yes (Other)
  Sender: FDA-Public Use
  Company Number: CA-ROCHE-1382896

PATIENT
  Sex: Female
  Weight: 71.4 kg

DRUGS (7)
  1. ACTEMRA [Suspect]
     Indication: RHEUMATOID ARTHRITIS
     Dosage: ONGOING
     Route: 042
     Dates: start: 20101216
  2. ACTEMRA [Suspect]
     Route: 042
     Dates: start: 20110413
  3. CRESTOR [Concomitant]
  4. RAMIPRIL [Concomitant]
  5. PLAVIX [Concomitant]
  6. LYRICA [Concomitant]
  7. LOSEC [Concomitant]

REACTIONS (1)
  - Arthropathy [Unknown]
